FAERS Safety Report 16656267 (Version 1)
Quarter: 2019Q3

REPORT INFORMATION
  Report Type: Spontaneous
  Country: RO (occurrence: RO)
  Receive Date: 20190801
  Receipt Date: 20190801
  Transmission Date: 20191004
  Serious: Yes (Other)
  Sender: FDA-Public Use
  Company Number: RO-PFIZER INC-2019323584

PATIENT
  Age: 59 Year
  Sex: Female

DRUGS (4)
  1. FLUCONAZOLE. [Suspect]
     Active Substance: FLUCONAZOLE
     Indication: ANTI-INFECTIVE THERAPY
     Dosage: UNK
     Route: 042
  2. ACICLOVIR [Suspect]
     Active Substance: ACYCLOVIR
     Indication: ANTI-INFECTIVE THERAPY
     Dosage: UNK
     Route: 042
  3. CEFTRIAXONE SODIUM. [Suspect]
     Active Substance: CEFTRIAXONE SODIUM
     Indication: ANTI-INFECTIVE THERAPY
     Dosage: UNK
     Route: 042
  4. CIPROFLOXACINE [CIPROFLOXACIN] [Suspect]
     Active Substance: CIPROFLOXACIN
     Indication: ANTI-INFECTIVE THERAPY
     Dosage: UNK
     Route: 042

REACTIONS (2)
  - Drug ineffective [Recovered/Resolved]
  - Sepsis [Recovered/Resolved]
